FAERS Safety Report 8354969-3 (Version None)
Quarter: 2012Q2

REPORT INFORMATION
  Report Type: 
  Country: None (occurrence: None)
  Receive Date: 20120511
  Receipt Date: 20120504
  Transmission Date: 20120825
  Serious: Yes (Other)
  Sender: FDA-Public Use
  Company Number: NO-BAYER-2012-043447

PATIENT
  Age: 47 Year
  Sex: Female

DRUGS (2)
  1. MIRENA [Suspect]
     Dosage: 20 MCG/24HR, CONT
     Route: 015
     Dates: end: 20120504
  2. MIRENA [Suspect]

REACTIONS (5)
  - CERVIX HAEMORRHAGE UTERINE [None]
  - MUCOSAL HAEMORRHAGE [None]
  - GENITAL HAEMORRHAGE [None]
  - DEVICE DISLOCATION [None]
  - CERVIX DISORDER [None]
